FAERS Safety Report 10932586 (Version 1)
Quarter: 2015Q1

REPORT INFORMATION
  Report Type: Spontaneous
  Country: US (occurrence: None)
  Receive Date: 20150319
  Receipt Date: 20150319
  Transmission Date: 20150721
  Serious: Yes (Other)
  Sender: FDA-Public Use
  Company Number: None

PATIENT
  Age: 53 Year
  Sex: Male
  Weight: 90.72 kg

DRUGS (10)
  1. VYTORIN [Concomitant]
     Active Substance: EZETIMIBE\SIMVASTATIN
  2. GLUCOPHAGE XR [Concomitant]
     Active Substance: METFORMIN HYDROCHLORIDE
  3. SYNTHROID [Concomitant]
     Active Substance: LEVOTHYROXINE SODIUM
  4. ULTRACET [Suspect]
     Active Substance: ACETAMINOPHEN\TRAMADOL HYDROCHLORIDE
     Indication: SPONDYLOLISTHESIS
     Dosage: 2 PILLS
     Route: 048
     Dates: start: 20120501, end: 20141118
  5. PROTONIX [Concomitant]
     Active Substance: PANTOPRAZOLE SODIUM
  6. COREG [Concomitant]
     Active Substance: CARVEDILOL
  7. FLEXERIL [Concomitant]
     Active Substance: CYCLOBENZAPRINE HYDROCHLORIDE
  8. ALTACE [Concomitant]
     Active Substance: RAMIPRIL
  9. PROVIGIL [Concomitant]
     Active Substance: MODAFINIL
  10. BYDUREON [Concomitant]
     Active Substance: EXENATIDE

REACTIONS (2)
  - Malaise [None]
  - Gastritis [None]

NARRATIVE: CASE EVENT DATE: 20141118
